FAERS Safety Report 5427935-5 (Version None)
Quarter: 2007Q3

REPORT INFORMATION
  Report Type: 
  Country: None (occurrence: None)
  Receive Date: 20070828
  Receipt Date: 20070816
  Transmission Date: 20080115
  Serious: Yes (Hospitalization)
  Sender: FDA-Public Use
  Company Number: DK-PFIZER INC-2007068660

PATIENT
  Sex: Female

DRUGS (1)
  1. DIFLUCAN [Suspect]
     Route: 048
     Dates: start: 20070306, end: 20070306

REACTIONS (1)
  - ABORTION SPONTANEOUS [None]
